FAERS Safety Report 23397839 (Version 1)
Quarter: 2024Q1

REPORT INFORMATION
  Report Type: Spontaneous
  Country: MX (occurrence: MX)
  Receive Date: 20240112
  Receipt Date: 20240112
  Transmission Date: 20240410
  Serious: Yes (Death, Life-Threatening, Hospitalization, Other)
  Sender: FDA-Public Use
  Company Number: MX-Accord-399148

PATIENT
  Age: 50 Year
  Sex: Male
  Weight: 80 kg

DRUGS (1)
  1. ALLOPURINOL [Suspect]
     Active Substance: ALLOPURINOL
     Indication: Hyperuricaemia

REACTIONS (5)
  - Drug reaction with eosinophilia and systemic symptoms [Fatal]
  - Stevens-Johnson syndrome [Fatal]
  - Nephropathy toxic [Fatal]
  - Cardiac arrest [Fatal]
  - Respiratory distress [Fatal]
